FAERS Safety Report 8191932-X (Version None)
Quarter: 2012Q1

REPORT INFORMATION
  Report Type: 
  Country: None (occurrence: None)
  Receive Date: 20120307
  Receipt Date: 20120229
  Transmission Date: 20120608
  Serious: Yes (Hospitalization)
  Sender: FDA-Public Use
  Company Number: PHFR2012GB001271

PATIENT
  Sex: Male

DRUGS (4)
  1. CLOZARIL [Suspect]
     Route: 048
     Dates: start: 20060301, end: 20101201
  2. CLOZARIL [Suspect]
     Dosage: 500 MG, DAILY
     Route: 048
     Dates: start: 20110101
  3. CLOZARIL [Suspect]
     Indication: SCHIZOPHRENIA
     Dates: start: 20060222
  4. SERTRALINE HYDROCHLORIDE [Concomitant]
     Indication: DEPRESSION
     Dosage: 200 MG, DAILY
     Route: 048
     Dates: start: 20110101

REACTIONS (4)
  - LETHARGY [None]
  - MALAISE [None]
  - RECTAL HAEMORRHAGE [None]
  - ABDOMINAL PAIN [None]
